FAERS Safety Report 5623396-1 (Version None)
Quarter: 2008Q1

REPORT INFORMATION
  Report Type: 
  Country: None (occurrence: None)
  Receive Date: 20080212
  Receipt Date: 20080205
  Transmission Date: 20080703
  Serious: Yes (Death)
  Sender: FDA-Public Use
  Company Number: US-ALLERGAN-0801377US

PATIENT
  Sex: Male

DRUGS (3)
  1. BOTOX [Suspect]
     Indication: OROPHARYNGEAL SPASM
     Dosage: UNK, SINGLE
     Route: 030
     Dates: start: 20060701, end: 20060701
  2. LITHIUM CARBONATE [Concomitant]
     Indication: DRUG USE FOR UNKNOWN INDICATION
  3. BIVONA TRACHEOSTOMY TUBE [Concomitant]
     Indication: DRUG USE FOR UNKNOWN INDICATION

REACTIONS (1)
  - CARDIAC ARREST [None]
